FAERS Safety Report 25050741 (Version 2)
Quarter: 2025Q1

REPORT INFORMATION
  Report Type: Spontaneous
  Country: FR (occurrence: FR)
  Receive Date: 20250307
  Receipt Date: 20250311
  Transmission Date: 20250408
  Serious: Yes (Death, Hospitalization, Other)
  Sender: ASTELLAS
  Company Number: None

PATIENT
  Age: 67 Year
  Sex: Male
  Weight: 71 kg

DRUGS (15)
  1. TACROLIMUS [Interacting]
     Active Substance: TACROLIMUS
     Indication: Prophylaxis against transplant rejection
     Route: 048
     Dates: end: 20241125
  2. RITUXIMAB [Interacting]
     Active Substance: RITUXIMAB
     Indication: Diffuse large B-cell lymphoma
     Route: 042
     Dates: start: 20240416, end: 20240807
  3. CELLCEPT [Interacting]
     Active Substance: MYCOPHENOLATE MOFETIL
     Indication: Prophylaxis against transplant rejection
     Route: 048
     Dates: end: 20241115
  4. PREDNISONE [Interacting]
     Active Substance: PREDNISONE
     Indication: Prophylaxis against transplant rejection
     Route: 048
     Dates: end: 20241211
  5. RUXOLITINIB [Interacting]
     Active Substance: RUXOLITINIB
     Indication: Polycythaemia vera
     Route: 048
     Dates: end: 20241120
  6. LANSOPRAZOLE [Concomitant]
     Active Substance: LANSOPRAZOLE
     Indication: Product used for unknown indication
     Route: 048
  7. VALACYCLOVIR HYDROCHLORIDE [Concomitant]
     Active Substance: VALACYCLOVIR HYDROCHLORIDE
     Indication: Product used for unknown indication
     Route: 048
  8. BACTRIM [Concomitant]
     Active Substance: SULFAMETHOXAZOLE\TRIMETHOPRIM
     Indication: Product used for unknown indication
     Route: 048
  9. FOLIC ACID [Concomitant]
     Active Substance: FOLIC ACID
     Indication: Product used for unknown indication
     Route: 048
  10. KARDEGIC [Concomitant]
     Active Substance: ASPIRIN DL-LYSINE
     Indication: Product used for unknown indication
     Route: 048
  11. ATORVASTATIN [Concomitant]
     Active Substance: ATORVASTATIN
     Indication: Product used for unknown indication
     Route: 048
  12. FUROSEMIDE [Concomitant]
     Active Substance: FUROSEMIDE
     Indication: Product used for unknown indication
     Route: 048
  13. VILDAGLIPTIN [Concomitant]
     Active Substance: VILDAGLIPTIN
     Indication: Product used for unknown indication
     Route: 048
  14. CHOLECALCIFEROL [Concomitant]
     Active Substance: CHOLECALCIFEROL
     Indication: Product used for unknown indication
     Route: 048
  15. IRBESARTAN [Concomitant]
     Active Substance: IRBESARTAN
     Indication: Product used for unknown indication
     Route: 048
     Dates: end: 202410

REACTIONS (10)
  - Septic shock [Fatal]
  - Cytomegalovirus infection [Not Recovered/Not Resolved]
  - Drug interaction [Not Recovered/Not Resolved]
  - Rhinovirus infection [Not Recovered/Not Resolved]
  - Urinary tract infection [Not Recovered/Not Resolved]
  - Pneumonia fungal [Not Recovered/Not Resolved]
  - Disseminated mucormycosis [Not Recovered/Not Resolved]
  - Fusarium infection [Not Recovered/Not Resolved]
  - Urinary tract candidiasis [Not Recovered/Not Resolved]
  - Klebsiella bacteraemia [Not Recovered/Not Resolved]

NARRATIVE: CASE EVENT DATE: 20241018
